FAERS Safety Report 19760288 (Version 2)
Quarter: 2021Q4

REPORT INFORMATION
  Report Type: Spontaneous
  Country: US (occurrence: US)
  Receive Date: 20210830
  Receipt Date: 20211012
  Transmission Date: 20220303
  Serious: Yes (Other)
  Sender: FDA-Public Use
  Company Number: US-NOVOPROD-840652

PATIENT
  Age: 72 Year
  Sex: Male

DRUGS (2)
  1. NOVOLOG [Suspect]
     Active Substance: INSULIN ASPART
     Dosage: UNK
     Route: 058
  2. NOVOLOG [Suspect]
     Active Substance: INSULIN ASPART
     Indication: Product used for unknown indication
     Dosage: 1 TO 50 RATIO 23 OR 24 UNITS A DAY
     Route: 058
     Dates: start: 2015

REACTIONS (6)
  - Benign neoplasm [Not Recovered/Not Resolved]
  - Ear infection [Recovered/Resolved]
  - Sinusitis [Recovered/Resolved]
  - Auditory disorder [Not Recovered/Not Resolved]
  - Blood glucose increased [Recovered/Resolved]
  - Product administration error [Unknown]

NARRATIVE: CASE EVENT DATE: 20210601
